FAERS Safety Report 4776234-3 (Version None)
Quarter: 2005Q3

REPORT INFORMATION
  Report Type: 
  Country: None (occurrence: None)
  Receive Date: 20050922
  Receipt Date: 20050914
  Transmission Date: 20060218
  Serious: Yes (Hospitalization)
  Sender: FDA-Public Use
  Company Number: US-JNJFOC-20050903953

PATIENT
  Sex: Female
  Weight: 81.65 kg

DRUGS (8)
  1. CONCERTA [Suspect]
     Route: 048
  2. CONCERTA [Suspect]
     Indication: ATTENTION DEFICIT/HYPERACTIVITY DISORDER
     Route: 048
  3. GEODON [Concomitant]
  4. ABILIFY [Concomitant]
  5. TEGRETOL [Concomitant]
  6. BENADRYL [Concomitant]
  7. MYSOLENE [Concomitant]
  8. EFFEXOR [Concomitant]

REACTIONS (1)
  - AGGRESSION [None]
